FAERS Safety Report 7220789-6 (Version None)
Quarter: 2011Q1

REPORT INFORMATION
  Report Type: 
  Country: None (occurrence: None)
  Receive Date: 20110112
  Receipt Date: 20110104
  Transmission Date: 20110831
  Serious: Yes (Hospitalization)
  Sender: FDA-Public Use
  Company Number: US-BIOGENIDEC-2010BI026754

PATIENT
  Age: 28 Year
  Sex: Female
  Weight: 11 kg

DRUGS (3)
  1. NEURONTIN [Concomitant]
     Indication: TREMOR
  2. TYSABRI [Suspect]
     Indication: MULTIPLE SCLEROSIS
     Route: 042
     Dates: start: 20070223, end: 20100601
  3. BACLOFEN [Concomitant]
     Indication: TREMOR

REACTIONS (5)
  - DRUG HYPERSENSITIVITY [None]
  - ABASIA [None]
  - TREMOR [None]
  - MUSCULAR WEAKNESS [None]
  - FATIGUE [None]
